FAERS Safety Report 6274187-2 (Version None)
Quarter: 2009Q3

REPORT INFORMATION
  Report Type: 
  Country: None (occurrence: None)
  Receive Date: 20090716
  Receipt Date: 20090706
  Transmission Date: 20100115
  Serious: Yes (Hospitalization)
  Sender: FDA-Public Use
  Company Number: 1000007293

PATIENT

DRUGS (1)
  1. CARBAMAZEPINE [Suspect]
     Indication: BORDERLINE PERSONALITY DISORDER

REACTIONS (4)
  - HYPERSENSITIVITY [None]
  - MUMPS [None]
  - UPPER RESPIRATORY TRACT INFECTION [None]
  - VIRAL INFECTION [None]
